FAERS Safety Report 18904512 (Version 1)
Quarter: 2021Q1

REPORT INFORMATION
  Report Type: Other
  Country: US (occurrence: US)
  Receive Date: 20210217
  Receipt Date: 20210217
  Transmission Date: 20210420
  Serious: Yes (Death)
  Sender: FDA-Public Use
  Company Number: US-ROCHE-2771239

PATIENT
  Sex: Male
  Weight: 93.52 kg

DRUGS (6)
  1. ACTEMRA [Suspect]
     Active Substance: TOCILIZUMAB
     Dosage: 400 MG VIAL?INFUSE 749.1MG (8MG/KG) INTRAVENOUSLY EVERY 4 WEEK
     Route: 042
  2. ACTEMRA [Suspect]
     Active Substance: TOCILIZUMAB
     Indication: RHEUMATOID ARTHRITIS
     Dosage: INFUSE 749.1MG (8MG/KG) INTRAVENOUSLY EVERY 4 WEEK
     Route: 042
  3. ACTEMRA [Suspect]
     Active Substance: TOCILIZUMAB
  4. ACTEMRA [Suspect]
     Active Substance: TOCILIZUMAB
  5. ACTEMRA [Suspect]
     Active Substance: TOCILIZUMAB
  6. ACTEMRA [Suspect]
     Active Substance: TOCILIZUMAB
     Dosage: 200 MG VIAL?INFUSE 749.1MG (8MG/KG) INTRAVENOUSLY EVERY 4 WEEK
     Route: 042

REACTIONS (1)
  - Death [Fatal]
